FAERS Safety Report 14848952 (Version 3)
Quarter: 2018Q3

REPORT INFORMATION
  Report Type: Spontaneous
  Country: US (occurrence: US)
  Receive Date: 20180504
  Receipt Date: 20180710
  Transmission Date: 20181010
  Serious: Yes (Other)
  Sender: FDA-Public Use
  Company Number: US-PRINSTON PHARMACEUTICAL INC.-2018PRN00217

PATIENT
  Age: 60 Year
  Sex: Male
  Weight: 74.38 kg

DRUGS (11)
  1. LISINOPRIL. [Suspect]
     Active Substance: LISINOPRIL
     Indication: HYPERTENSION
     Dosage: 20 MG, 2X/DAY
     Route: 048
     Dates: start: 20160412, end: 20180502
  2. CHLORTHALIDONE. [Suspect]
     Active Substance: CHLORTHALIDONE
     Indication: HYPERTENSION
     Dosage: UNK, AS NEEDED IN THE EVENING
  3. VITAMIN B12 [Concomitant]
     Active Substance: CYANOCOBALAMIN
  4. QUETIAPINE. [Concomitant]
     Active Substance: QUETIAPINE
  5. VITAMIN D [Concomitant]
     Active Substance: CHOLECALCIFEROL
  6. LIQUID D3 [Concomitant]
  7. WARFARIN [Concomitant]
     Active Substance: WARFARIN
  8. FLUTICASONE PROPIONATE. [Concomitant]
     Active Substance: FLUTICASONE PROPIONATE
  9. ADDERALL [Suspect]
     Active Substance: AMPHETAMINE ASPARTATE\AMPHETAMINE SULFATE\DEXTROAMPHETAMINE SACCHARATE\DEXTROAMPHETAMINE SULFATE
     Dosage: UNK
  10. BUPROPION. [Concomitant]
     Active Substance: BUPROPION
  11. TAMSULOSIN [Suspect]
     Active Substance: TAMSULOSIN
     Dosage: UNK
     Dates: end: 201803

REACTIONS (5)
  - Blood pressure inadequately controlled [Recovering/Resolving]
  - Drug ineffective [Recovered/Resolved]
  - Product substitution issue [Not Recovered/Not Resolved]
  - Anorgasmia [Recovering/Resolving]
  - Erectile dysfunction [Recovering/Resolving]

NARRATIVE: CASE EVENT DATE: 201801
